FAERS Safety Report 7533301-9 (Version None)
Quarter: 2011Q2

REPORT INFORMATION
  Report Type: 
  Country: None (occurrence: None)
  Receive Date: 20110608
  Receipt Date: 20050502
  Transmission Date: 20111010
  Serious: Yes (Other)
  Sender: FDA-Public Use
  Company Number: PHNR2005AU00541

PATIENT
  Sex: Male

DRUGS (1)
  1. CLOZAPINE [Suspect]
     Indication: SCHIZOPHRENIA
     Dosage: 800 MG DAILY
     Dates: start: 20030502, end: 20050319

REACTIONS (5)
  - DILATATION VENTRICULAR [None]
  - EJECTION FRACTION DECREASED [None]
  - ECHOCARDIOGRAM ABNORMAL [None]
  - LEFT VENTRICULAR DYSFUNCTION [None]
  - MENTAL DISORDER [None]
